FAERS Safety Report 16115084 (Version 1)
Quarter: 2019Q1

REPORT INFORMATION
  Report Type: Spontaneous
  Country: US (occurrence: US)
  Receive Date: 20190325
  Receipt Date: 20190325
  Transmission Date: 20190418
  Serious: No
  Sender: FDA-Public Use
  Company Number: US-SMITH AND NEPHEW, INC-2018SMT00076

PATIENT
  Sex: Male

DRUGS (2)
  1. COLLAGENASE SANTYL [Suspect]
     Active Substance: COLLAGENASE CLOSTRIDIUM HISTOLYTICUM
     Indication: WOUND
     Route: 061
     Dates: start: 20180423
  2. IODINE. [Concomitant]
     Active Substance: IODINE
     Dates: start: 2018

REACTIONS (2)
  - Application site pain [Unknown]
  - Off label use [Unknown]

NARRATIVE: CASE EVENT DATE: 20180423
